FAERS Safety Report 10183649 (Version 1)
Quarter: 2014Q2

REPORT INFORMATION
  Report Type: Report from Study
  Country: US (occurrence: US)
  Receive Date: 20140520
  Receipt Date: 20140520
  Transmission Date: 20141212
  Serious: Yes (Hospitalization, Other)
  Sender: FDA-Public Use
  Company Number: US-JNJFOC-20140507283

PATIENT
  Sex: 0

DRUGS (2)
  1. SIMPONI ARIA [Suspect]
     Indication: PRODUCT USED FOR UNKNOWN INDICATION
     Route: 042
  2. SIMPONI [Suspect]
     Indication: PRODUCT USED FOR UNKNOWN INDICATION
     Route: 058

REACTIONS (9)
  - Chest pain [Unknown]
  - Infection [Unknown]
  - Raynaud^s phenomenon [Unknown]
  - Heart rate increased [Unknown]
  - Neuropathy peripheral [Unknown]
  - Hypoaesthesia [Unknown]
  - Tinnitus [Unknown]
  - Rash [Unknown]
  - Drug dispensing error [Unknown]
